FAERS Safety Report 6879898-3 (Version None)
Quarter: 2010Q3

REPORT INFORMATION
  Report Type: 
  Country: None (occurrence: None)
  Receive Date: 20100728
  Receipt Date: 20100719
  Transmission Date: 20110219
  Serious: Yes (Hospitalization)
  Sender: FDA-Public Use
  Company Number: FR-SANOFI-AVENTIS-2010SA041813

PATIENT
  Age: 61 Year
  Sex: Male

DRUGS (10)
  1. ZOLPIDEM [Suspect]
     Indication: MULTIPLE DRUG OVERDOSE INTENTIONAL
     Route: 048
  2. ATHYMIL [Suspect]
     Indication: MULTIPLE DRUG OVERDOSE INTENTIONAL
     Route: 048
  3. TEGRETOL [Suspect]
     Indication: MULTIPLE DRUG OVERDOSE INTENTIONAL
     Route: 048
  4. ATHYMIL [Concomitant]
     Route: 048
  5. TEGRETOL [Concomitant]
     Route: 048
  6. TEGRETOL - SLOW RELEASE [Concomitant]
     Route: 048
  7. ZYPREXA [Concomitant]
     Route: 048
  8. LEVOTHYROXINE SODIUM [Concomitant]
     Route: 048
  9. ROSUVASTATIN CALCIUM [Concomitant]
     Route: 048
  10. EZETROL [Concomitant]
     Route: 048

REACTIONS (9)
  - ALTERED STATE OF CONSCIOUSNESS [None]
  - ANION GAP INCREASED [None]
  - BINOCULAR EYE MOVEMENT DISORDER [None]
  - HYPERLACTACIDAEMIA [None]
  - HYPOTENSION [None]
  - METABOLIC ACIDOSIS [None]
  - MULTIPLE DRUG OVERDOSE INTENTIONAL [None]
  - RENAL FAILURE [None]
  - SUICIDE ATTEMPT [None]
